FAERS Safety Report 4965696-4 (Version None)
Quarter: 2006Q1

REPORT INFORMATION
  Report Type: 
  Country: None (occurrence: None)
  Receive Date: 20060331
  Receipt Date: 20060317
  Transmission Date: 20060701
  Serious: Yes (Other)
  Sender: FDA-Public Use
  Company Number: FR200603004981

PATIENT
  Age: 13 Year
  Sex: Male

DRUGS (1)
  1. UMATROPE [Suspect]
     Indication: GROWTH RETARDATION
     Dosage: 17 D/F, WEEKLY (1/W), SUBCUTANEOUS
     Route: 058
     Dates: start: 20030101

REACTIONS (5)
  - AMNESIA [None]
  - CHEST PAIN [None]
  - INSOMNIA [None]
  - NAUSEA [None]
  - VERTIGO [None]
